FAERS Safety Report 9344796 (Version 1)
Quarter: 2013Q2

REPORT INFORMATION
  Report Type: Spontaneous
  Country: US (occurrence: US)
  Receive Date: 20130612
  Receipt Date: 20130612
  Transmission Date: 20140414
  Serious: Yes (Other)
  Sender: FDA-Public Use
  Company Number: US-COVIDIEN/TYCO HEALTHCARE/MALLINCKRODT-T201302808

PATIENT
  Sex: Female
  Weight: 71.2 kg

DRUGS (1)
  1. PENNSAID TOPICAL [Suspect]
     Indication: INFLAMMATION
     Dosage: UNK, BID, PRN
     Route: 061
     Dates: start: 20130526, end: 20130605

REACTIONS (6)
  - Speech disorder [Unknown]
  - Depression [Unknown]
  - Urinary tract infection [Unknown]
  - Oropharyngeal pain [Unknown]
  - Nervousness [Unknown]
  - Rash [Unknown]
